FAERS Safety Report 8158296-9 (Version None)
Quarter: 2012Q1

REPORT INFORMATION
  Report Type: 
  Country: None (occurrence: None)
  Receive Date: 20120223
  Receipt Date: 20120216
  Transmission Date: 20120608
  Serious: No
  Sender: FDA-Public Use
  Company Number: US-BIOGENIDEC-2012BI003836

PATIENT
  Age: 19 Year
  Sex: Female
  Weight: 105 kg

DRUGS (5)
  1. VITAMIN D [Concomitant]
  2. TYSABRI [Suspect]
     Indication: PRODUCT USED FOR UNKNOWN INDICATION
     Route: 042
     Dates: start: 20100922, end: 20110101
  3. TOPAMAX [Concomitant]
     Indication: MIGRAINE
  4. MEDICATION (NOS) [Concomitant]
     Indication: GASTROOESOPHAGEAL REFLUX DISEASE
  5. ZYRTEC [Concomitant]

REACTIONS (4)
  - FATIGUE [None]
  - MULTIPLE SCLEROSIS [None]
  - MALAISE [None]
  - MIGRAINE [None]
